FAERS Safety Report 14119334 (Version 1)
Quarter: 2017Q4

REPORT INFORMATION
  Report Type: Spontaneous
  Country: US (occurrence: US)
  Receive Date: 20171024
  Receipt Date: 20171024
  Transmission Date: 20180321
  Serious: No
  Sender: FDA-Public Use
  Company Number: US-PFIZER INC-2017455396

PATIENT
  Age: 63 Year
  Sex: Female

DRUGS (3)
  1. RITUXIMAB. [Suspect]
     Active Substance: RITUXIMAB
     Dosage: FCR STARTED IT IN JUN2012 FOR 3 DAYS AND WAS OFF FOR 25 DAYS. REPEATED THIS CYCLE FOR FOUR MONTHS.
     Dates: start: 201206
  2. CYCLOPHOSPHAMIDE. [Suspect]
     Active Substance: CYCLOPHOSPHAMIDE
     Dosage: FCR STARTED IT IN JUN2012 FOR 3 DAYS AND WAS OFF FOR 25 DAYS. REPEATED THIS CYCLE FOR FOUR MONTHS.
     Dates: start: 201206
  3. FLUDARABINE PHOSPHATE. [Suspect]
     Active Substance: FLUDARABINE PHOSPHATE
     Dosage: FCR STARTED IT IN JUN2012 FOR 3 DAYS AND WAS OFF FOR 25 DAYS. REPEATED THIS CYCLE FOR FOUR MONTHS.
     Dates: start: 201206

REACTIONS (2)
  - Paraesthesia [Unknown]
  - Neuropathy peripheral [Unknown]
